FAERS Safety Report 9358626 (Version 1)
Quarter: 2013Q2

REPORT INFORMATION
  Report Type: Spontaneous
  Country: DK (occurrence: DK)
  Receive Date: 20130620
  Receipt Date: 20130620
  Transmission Date: 20140414
  Serious: Yes (Hospitalization, Congenital Anomaly, Other)
  Sender: FDA-Public Use
  Company Number: PHHY2013DK060119

PATIENT
  Age: 0 Day
  Sex: Male

DRUGS (1)
  1. VENLAFAXINE SANDOZ [Suspect]
     Indication: DEPRESSION
     Route: 064

REACTIONS (3)
  - Anal stenosis [Recovered/Resolved]
  - Surgery [Recovered/Resolved]
  - Foetal exposure during pregnancy [Recovered/Resolved]
